FAERS Safety Report 9678442 (Version 2)
Quarter: 2013Q4

REPORT INFORMATION
  Report Type: Spontaneous
  Country: JP (occurrence: JP)
  Receive Date: 20131108
  Receipt Date: 20131115
  Transmission Date: 20140711
  Serious: Yes (Other)
  Sender: FDA-Public Use
  Company Number: JP-ASTRAZENECA-2013SE80728

PATIENT
  Age: 69 Year
  Sex: Male

DRUGS (6)
  1. PROPOFOL (NON AZ PRODUCT) [Suspect]
     Indication: INDUCTION OF ANAESTHESIA
     Route: 042
  2. FENTANYL [Concomitant]
     Indication: INDUCTION OF ANAESTHESIA
     Route: 042
  3. REMIFENTANIL [Concomitant]
     Indication: MAINTENANCE OF ANAESTHESIA
     Dosage: 0.1 - 0.2 MCG/KG/MIN
     Route: 042
  4. ROCURONIUM [Concomitant]
     Indication: INDUCTION OF ANAESTHESIA
     Route: 042
  5. SEVOFLURANE [Concomitant]
     Indication: MAINTENANCE OF ANAESTHESIA
     Dosage: 1.0-1.5%
  6. PHENYLEPHRINE HYDROCHLORIDE [Concomitant]
     Indication: BLOOD PRESSURE DECREASED

REACTIONS (2)
  - Electrocardiogram ST segment elevation [Recovered/Resolved]
  - Blood pressure decreased [Unknown]
